FAERS Safety Report 9764563 (Version 3)
Quarter: 2014Q1

REPORT INFORMATION
  Report Type: Report from Study
  Country: JP (occurrence: JP)
  Receive Date: 20131217
  Receipt Date: 20140228
  Transmission Date: 20141002
  Serious: Yes (Death, Other)
  Sender: FDA-Public Use
  Company Number: JP-AMGEN-JPNCT2013087636

PATIENT
  Age: 35 Year
  Sex: Male
  Weight: 55 kg

DRUGS (21)
  1. ROMIPLOSTIM - KHK [Suspect]
     Indication: IMMUNE THROMBOCYTOPENIC PURPURA
     Dosage: 10 MUG/KG, QWK
     Route: 058
     Dates: end: 20131029
  2. PREDNISOLONE [Concomitant]
     Indication: IMMUNE THROMBOCYTOPENIC PURPURA
     Dosage: 60 MG, UNK
     Route: 065
     Dates: start: 201307, end: 20131101
  3. PREDNISOLONE [Concomitant]
     Dosage: 60 MG, UNK
     Route: 048
     Dates: start: 201307, end: 20130903
  4. CELECOX [Concomitant]
     Indication: ANGIOSARCOMA
     Dosage: UNK
     Route: 048
  5. BAKTAR [Concomitant]
     Indication: ANGIOSARCOMA
     Dosage: UNK
     Route: 048
  6. TAKEPRON [Concomitant]
     Indication: PROPHYLAXIS
     Dosage: UNK
     Route: 048
  7. MUCOSTA [Concomitant]
     Indication: PROPHYLAXIS
     Dosage: UNK
     Route: 048
  8. FLUCONARL [Concomitant]
     Indication: ANGIOSARCOMA
     Dosage: UNK
     Route: 048
  9. DIART [Concomitant]
     Indication: ANGIOSARCOMA
     Dosage: UNK
     Route: 048
  10. MAGMITT [Concomitant]
     Indication: ANGIOSARCOMA
     Dosage: UNK
     Route: 048
  11. MYSLEE [Concomitant]
     Indication: ANGIOSARCOMA
     Dosage: UNK
     Route: 048
  12. MS CONTIN [Concomitant]
     Indication: ANGIOSARCOMA
     Dosage: UNK
     Route: 048
  13. ADONA                              /00056903/ [Concomitant]
     Indication: ANGIOSARCOMA
     Dosage: UNK
     Route: 048
  14. CYMBALTA [Concomitant]
     Indication: ANGIOSARCOMA
     Dosage: UNK
     Route: 048
  15. REMERON [Concomitant]
     Indication: ANGIOSARCOMA
     Dosage: UNK
     Route: 048
  16. MORPHINE HYDROCHLORIDE TRIHYDRATE [Concomitant]
     Indication: ANGIOSARCOMA
     Dosage: UNK
     Route: 065
  17. ALLOID G [Concomitant]
     Indication: ANGIOSARCOMA
     Dosage: UNK
     Route: 048
  18. ROPION [Concomitant]
     Indication: ANGIOSARCOMA
     Dosage: UNK
     Route: 065
  19. ZOSYN [Concomitant]
     Indication: ANGIOSARCOMA
     Dosage: UNK
     Route: 065
  20. ZOMETA [Concomitant]
     Indication: ANGIOSARCOMA
     Dosage: UNK
     Route: 041
  21. CONCENTRATED RED CELLS [Concomitant]
     Indication: ANGIOSARCOMA
     Dosage: UNK
     Route: 042

REACTIONS (2)
  - Melaena [Not Recovered/Not Resolved]
  - Angiosarcoma [Fatal]
